FAERS Safety Report 13867055 (Version 1)
Quarter: 2017Q3

REPORT INFORMATION
  Report Type: Spontaneous
  Country: US (occurrence: US)
  Receive Date: 20170814
  Receipt Date: 20170814
  Transmission Date: 20171127
  Serious: No
  Sender: FDA-Public Use
  Company Number: US-BAYER-2017-153968

PATIENT
  Sex: Female

DRUGS (2)
  1. DESONATE [Suspect]
     Active Substance: DESONIDE
     Indication: ROSACEA
     Dosage: UNK
     Route: 061
  2. DESONATE [Suspect]
     Active Substance: DESONIDE
     Indication: DERMATITIS

REACTIONS (1)
  - Skin tightness [Unknown]
